FAERS Safety Report 22131719 (Version 2)
Quarter: 2023Q1

REPORT INFORMATION
  Report Type: Spontaneous
  Country: US (occurrence: US)
  Receive Date: 20230323
  Receipt Date: 20230329
  Transmission Date: 20230417
  Serious: No
  Sender: FDA-Public Use
  Company Number: US-PFIZER INC-PV202300054037

PATIENT
  Age: 15 Year
  Sex: Male

DRUGS (2)
  1. TOFACITINIB [Suspect]
     Active Substance: TOFACITINIB
     Indication: Alopecia areata
     Dosage: 15 MG, DAILY
  2. TOFACITINIB [Suspect]
     Active Substance: TOFACITINIB
     Dosage: 20 MG, DAILY

REACTIONS (3)
  - Acne [Unknown]
  - Off label use [Unknown]
  - Drug effective for unapproved indication [Unknown]
